FAERS Safety Report 7514977-9 (Version None)
Quarter: 2011Q2

REPORT INFORMATION
  Report Type: 
  Country: None (occurrence: None)
  Receive Date: 20110601
  Receipt Date: 20110526
  Transmission Date: 20111010
  Serious: Yes (Life-Threatening, Hospitalization)
  Sender: FDA-Public Use
  Company Number: PH-EISAI INC-E2090-01545-SPO-PH

PATIENT
  Age: 78 Year
  Sex: Female

DRUGS (10)
  1. DOXOFYLLINE [Concomitant]
     Indication: PNEUMONIA
     Dosage: UNKNOWN
  2. LOW MOLECULAR WEIGHT HEPARIN [Concomitant]
     Dosage: UNKNOWN
     Route: 058
     Dates: start: 20110101, end: 20110101
  3. OLMESARTAN MEDOXOMIL [Concomitant]
     Indication: HYPERTENSION
     Dosage: UNKNOWN
     Dates: start: 20110101
  4. MANNITOL [Concomitant]
     Dosage: UNKNOWN
     Route: 042
     Dates: start: 20110101, end: 20110101
  5. ZONEGRAN [Suspect]
     Dates: start: 20110101, end: 20110301
  6. ALISKIREN [Concomitant]
     Indication: HYPERTENSION
     Dosage: UNKNOWN
     Dates: start: 20110101
  7. CITICOLINE [Concomitant]
     Dosage: UNKNOWN
     Dates: start: 20110101, end: 20110101
  8. LEVOFLOXACIN [Concomitant]
     Indication: PNEUMONIA
     Dosage: UNKNOWN
  9. ACETYLCYSTEINE [Concomitant]
     Dosage: UNKNOWN
     Dates: start: 20110101
  10. WARFARIN SODIUM [Concomitant]
     Dosage: UNKNOWN
     Dates: start: 20110101, end: 20110301

REACTIONS (1)
  - STEVENS-JOHNSON SYNDROME [None]
